FAERS Safety Report 21293866 (Version 1)
Quarter: 2022Q3

REPORT INFORMATION
  Report Type: Spontaneous
  Country: US (occurrence: US)
  Receive Date: 20220905
  Receipt Date: 20220905
  Transmission Date: 20221027
  Serious: No
  Sender: FDA-Public Use
  Company Number: US-PADAGIS-2022PAD00283

PATIENT

DRUGS (1)
  1. MUPIROCIN [Suspect]
     Active Substance: MUPIROCIN
     Indication: Bacterial infection
     Dosage: UNK (PRESCRIBED TO USE INSIDE THE NOSE)
     Route: 065

REACTIONS (2)
  - Drug ineffective for unapproved indication [Unknown]
  - Product prescribing issue [Unknown]
